FAERS Safety Report 16186700 (Version 1)
Quarter: 2019Q2

REPORT INFORMATION
  Report Type: Spontaneous
  Country: FR (occurrence: FR)
  Receive Date: 20190411
  Receipt Date: 20190411
  Transmission Date: 20190711
  Serious: Yes (Hospitalization)
  Sender: FDA-Public Use
  Company Number: FR-MYLANLABS-2019M1034149

PATIENT
  Age: 28 Year
  Sex: Female
  Weight: 78 kg

DRUGS (7)
  1. DEXAMBUTOL [Suspect]
     Active Substance: ETHAMBUTOL HYDROCHLORIDE
     Indication: MILIARIA
     Dosage: 1500 MILLIGRAM, QD
     Route: 048
     Dates: start: 20180619, end: 20180707
  2. MYLAN-LANSOPRAZOLE [Suspect]
     Active Substance: LANSOPRAZOLE
     Indication: PRODUCT USED FOR UNKNOWN INDICATION
     Dosage: 15 MILLIGRAM, QD
     Route: 048
     Dates: start: 20180618, end: 20180707
  3. RIFADINE                           /00146902/ [Suspect]
     Active Substance: RIFAMPIN SODIUM
     Indication: MILIARIA
     Dosage: 200 MILLIGRAM, QD
     Route: 048
     Dates: start: 20180619, end: 20180707
  4. PIRILENE [Suspect]
     Active Substance: PYRAZINAMIDE
     Indication: MILIARIA
     Dosage: 2000 MILLIGRAM, QD
     Route: 048
     Dates: start: 20180619, end: 20180707
  5. BACTRIM [Suspect]
     Active Substance: SULFAMETHOXAZOLE\TRIMETHOPRIM
     Indication: INFECTION PROPHYLAXIS
     Dosage: 400 MILLIGRAM, QD
     Route: 048
     Dates: start: 20180610, end: 20180707
  6. RIMIFON [Suspect]
     Active Substance: ISONIAZID
     Indication: MILIARIA
     Dosage: 350 MILLIGRAM, QD
     Route: 048
     Dates: start: 20180619, end: 20180707
  7. RIMACTANE [Suspect]
     Active Substance: RIFAMPIN
     Indication: MILIARIA
     Dosage: 600 MILLIGRAM, QD
     Route: 048
     Dates: start: 20180619, end: 20180707

REACTIONS (4)
  - Hepatocellular injury [Recovered/Resolved]
  - Face oedema [Recovered/Resolved]
  - Rash [Recovered/Resolved]
  - Pyrexia [Recovered/Resolved]

NARRATIVE: CASE EVENT DATE: 20180701
